FAERS Safety Report 9650778 (Version 4)
Quarter: 2022Q1

REPORT INFORMATION
  Report Type: Report from Study
  Country: US (occurrence: US)
  Receive Date: 20131029
  Receipt Date: 20220211
  Transmission Date: 20220424
  Serious: Yes (Hospitalization)
  Sender: FDA-Public Use
  Company Number: US-SHIRE-ALL1-2013-07294

PATIENT
  Age: 20 Year
  Sex: Male

DRUGS (3)
  1. IDURSULFASE [Suspect]
     Active Substance: IDURSULFASE
     Indication: Mucopolysaccharidosis II
     Dosage: UNK, 1X/WEEK
     Route: 041
     Dates: start: 20060129
  2. IDURSULFASE [Suspect]
     Active Substance: IDURSULFASE
     Dosage: 0.52 MILLIGRAM/KILOGRAM, 1/WEEK
     Route: 042
     Dates: start: 20130610
  3. LISINOPRIL [Concomitant]
     Active Substance: LISINOPRIL
     Indication: Cardiac disorder
     Dosage: 5 MG, 1X/DAY:QD
     Route: 048

REACTIONS (2)
  - Tooth impacted [Recovered/Resolved]
  - Respiratory disorder [Unknown]

NARRATIVE: CASE EVENT DATE: 20110119
